FAERS Safety Report 8788935 (Version 2)
Quarter: 2012Q4

REPORT INFORMATION
  Report Type: 
  Country: US (occurrence: US)
  Receive Date: 20120917
  Receipt Date: 20121119
  Transmission Date: 20130627
  Serious: No
  Sender: FDA-Public Use
  Company Number: US-PFIZER INC-2012226097

PATIENT
  Age: 63 Year
  Sex: Female

DRUGS (1)
  1. SUTENT [Suspect]
     Indication: KIDNEY CANCER
     Dosage: 25 mg, UNK
     Dates: start: 20120510, end: 20121008

REACTIONS (5)
  - Disease progression [Unknown]
  - Renal cancer [Unknown]
  - Drug intolerance [Unknown]
  - Stomatitis [Unknown]
  - Fatigue [Unknown]
